FAERS Safety Report 7791955-6 (Version None)
Quarter: 2011Q4

REPORT INFORMATION
  Report Type: 
  Country: None (occurrence: None)
  Receive Date: 20111003
  Receipt Date: 20110927
  Transmission Date: 20120403
  Serious: Yes (Hospitalization, Other)
  Sender: FDA-Public Use
  Company Number: US-PFIZER INC-2011230979

PATIENT
  Sex: Female

DRUGS (5)
  1. LYRICA [Suspect]
     Indication: DIABETIC NEUROPATHY
     Dosage: 50 MG, 2X/DAY
     Route: 048
     Dates: start: 20060101
  2. IBUPROFEN [Concomitant]
     Indication: OSTEOARTHRITIS
     Dosage: UNK
  3. TYLENOL-500 [Concomitant]
     Indication: OSTEOARTHRITIS
     Dosage: UNK
  4. PERCOCET [Concomitant]
     Indication: OSTEOARTHRITIS
     Dosage: UNK
  5. HYDROCODONE [Concomitant]
     Indication: OSTEOARTHRITIS
     Dosage: UNK

REACTIONS (1)
  - PNEUMONIA [None]
